FAERS Safety Report 12561883 (Version 1)
Quarter: 2016Q3

REPORT INFORMATION
  Report Type: Spontaneous
  Country: US (occurrence: US)
  Receive Date: 20160715
  Receipt Date: 20160715
  Transmission Date: 20161109
  Serious: No
  Sender: FDA-Public Use
  Company Number: US-ACTELION-A-US2016-139250

PATIENT
  Age: 68 Year
  Sex: Female

DRUGS (11)
  1. OPSUMIT [Suspect]
     Active Substance: MACITENTAN
     Indication: PULMONARY ARTERIAL HYPERTENSION
     Dosage: 10 MG, QD
     Route: 048
  2. IPRATROPIUM BROMIDE. [Concomitant]
     Active Substance: IPRATROPIUM BROMIDE
  3. DULOXETINE. [Concomitant]
     Active Substance: DULOXETINE
  4. LIDODERM [Concomitant]
     Active Substance: LIDOCAINE
  5. AZELASTINE [Concomitant]
     Active Substance: AZELASTINE
  6. CALCIUM [Concomitant]
     Active Substance: CALCIUM
  7. MELATONIN [Concomitant]
     Active Substance: MELATONIN
  8. CLONAZEPAM. [Concomitant]
     Active Substance: CLONAZEPAM
  9. OLOPATADINE HYDROCHLORIDE. [Concomitant]
     Active Substance: OLOPATADINE HYDROCHLORIDE
  10. ASPIRIN. [Concomitant]
     Active Substance: ASPIRIN
  11. OMEGA 3 [Concomitant]
     Active Substance: OMEGA-3 FATTY ACIDS

REACTIONS (1)
  - Peripheral venous disease [Not Recovered/Not Resolved]

NARRATIVE: CASE EVENT DATE: 20160701
